FAERS Safety Report 8299304 (Version 4)
Quarter: 2012Q4

REPORT INFORMATION
  Report Type: Report from Study
  Country: CA (occurrence: CA)
  Receive Date: 20111219
  Receipt Date: 20121026
  Transmission Date: 20130627
  Serious: Yes (Hospitalization, Other)
  Sender: FDA-Public Use
  Company Number: CA-ROCHE-1022052

PATIENT
  Age: 55 None
  Sex: Male
  Weight: 74.91 kg

DRUGS (17)
  1. TOCILIZUMAB [Suspect]
     Indication: RHEUMATOID ARTHRITIS
     Route: 042
  2. TOCILIZUMAB [Suspect]
     Dosage: THERAPY INTERRUPTED DUE TO AE, last dose prior to SAE: 25/Nov/2011
     Route: 042
  3. TOCILIZUMAB [Suspect]
     Route: 042
  4. ASPIRIN [Concomitant]
     Route: 048
  5. CRESTOR [Concomitant]
     Indication: LIPIDS INCREASED
     Route: 048
  6. PREDNISONE [Concomitant]
     Indication: RHEUMATOID ARTHRITIS
     Route: 048
  7. FOLIC ACID [Concomitant]
  8. VITAMIN D [Concomitant]
  9. RALIVIA [Concomitant]
  10. STEROID (UNK INGREDIENTS) [Concomitant]
     Route: 058
     Dates: start: 201107
  11. ASA, ENTERIC COATED [Concomitant]
     Dosage: 21/oct/2005
     Route: 048
  12. METOPROLOL [Concomitant]
     Indication: HYPERTENSION
     Route: 048
     Dates: start: 20091009
  13. CELEXA [Concomitant]
     Indication: DEPRESSION
     Route: 048
  14. FENOFIBRATE [Concomitant]
     Indication: LIPIDS INCREASED
     Route: 048
     Dates: start: 20090826
  15. SLOW-K [Concomitant]
     Route: 048
     Dates: start: 20100210
  16. PLAVIX [Concomitant]
     Route: 048
     Dates: start: 20111223
  17. LISINOPRIL [Concomitant]
     Indication: HYPERTENSION
     Route: 048

REACTIONS (5)
  - Myocardial infarction [Recovered/Resolved]
  - Pulmonary mass [Not Recovered/Not Resolved]
  - Rheumatoid arthritis [Not Recovered/Not Resolved]
  - Dyspnoea [Not Recovered/Not Resolved]
  - Rheumatoid nodule [Not Recovered/Not Resolved]
